FAERS Safety Report 10297804 (Version 2)
Quarter: 2014Q3

REPORT INFORMATION
  Report Type: Report from Study
  Country: FR (occurrence: FR)
  Receive Date: 20140711
  Receipt Date: 20140815
  Transmission Date: 20150326
  Serious: Yes (Death, Life-Threatening)
  Sender: FDA-Public Use
  Company Number: FR-CELGENEUS-056-21880-14064861

PATIENT
  Age: 81 Year
  Sex: Male

DRUGS (8)
  1. STAGID [Concomitant]
     Active Substance: METFORMIN PAMOATE
     Indication: TYPE 2 DIABETES MELLITUS
     Dosage: 2 TABLET
     Route: 065
  2. LOXEN [Concomitant]
     Active Substance: NICARDIPINE HYDROCHLORIDE
     Indication: HYPERTENSION
     Route: 065
  3. REVLIMID [Suspect]
     Active Substance: LENALIDOMIDE
     Indication: DIFFUSE LARGE B-CELL LYMPHOMA
     Dosage: 25 MILLIGRAM
     Route: 048
     Dates: start: 20140311
  4. MABTHERA [Suspect]
     Active Substance: RITUXIMAB
     Indication: DIFFUSE LARGE B-CELL LYMPHOMA
     Dosage: 725 MILLIGRAM
     Route: 041
     Dates: start: 20140318, end: 20140318
  5. KARDEGIC [Concomitant]
     Active Substance: ASPIRIN LYSINE
     Indication: THROMBOSIS PROPHYLAXIS
     Dosage: 75 MILLIGRAM
     Route: 065
     Dates: start: 20140311
  6. TRANDATE [Concomitant]
     Active Substance: LABETALOL HYDROCHLORIDE
     Indication: HYPERTENSION
     Dosage: 1 TABLET
     Route: 065
  7. GLUCOPHAGE [Concomitant]
     Active Substance: METFORMIN HYDROCHLORIDE
     Indication: TYPE 2 DIABETES MELLITUS
     Dosage: 1 MILLIGRAM
     Route: 065
  8. NOVONORM [Concomitant]
     Active Substance: REPAGLINIDE
     Indication: TYPE 2 DIABETES MELLITUS
     Dosage: 3 TABLET
     Route: 065

REACTIONS (1)
  - Acute myocardial infarction [Fatal]

NARRATIVE: CASE EVENT DATE: 20140330
